FAERS Safety Report 8945336 (Version 1)
Quarter: 2012Q4

REPORT INFORMATION
  Report Type: 
  Country: GB (occurrence: GB)
  Receive Date: 20121205
  Receipt Date: 20121205
  Transmission Date: 20130627
  Serious: Yes (Other)
  Sender: FDA-Public Use
  Company Number: PHFR2012GB005429

PATIENT
  Sex: Female
  Weight: 160 kg

DRUGS (4)
  1. CLOZARIL [Suspect]
     Indication: SCHIZOAFFECTIVE DISORDER
     Dosage: 25 mg daily
     Route: 048
     Dates: start: 20110509
  2. CLOZARIL [Suspect]
     Dosage: UNK UKN, Dose reduced
     Route: 048
     Dates: end: 20121010
  3. AMISULPRIDE [Concomitant]
     Indication: PSYCHOTIC DISORDER
     Dosage: 100 mg, UNK
     Route: 048
  4. PAROXETIN [Concomitant]
     Indication: DEPRESSION
     Dosage: 50 mg, UNK
     Route: 048

REACTIONS (5)
  - Obesity [Recovering/Resolving]
  - Weight increased [Recovering/Resolving]
  - Type 2 diabetes mellitus [Unknown]
  - Fatigue [Recovered/Resolved]
  - Sedation [Unknown]
